FAERS Safety Report 19275047 (Version 1)
Quarter: 2021Q2

REPORT INFORMATION
  Report Type: Spontaneous
  Country: US (occurrence: US)
  Receive Date: 20210519
  Receipt Date: 20210519
  Transmission Date: 20210717
  Serious: No
  Sender: FDA-Public Use
  Company Number: US-GW PHARMA-202105USGW02362

PATIENT

DRUGS (1)
  1. EPIDIOLEX [Suspect]
     Active Substance: CANNABIDIOL
     Indication: LENNOX-GASTAUT SYNDROME
     Dosage: 1160 MILLIGRAM, QD (630 MG IN THE MORNING AND 530 MG IN THE EVENING)
     Route: 048
     Dates: start: 201903

REACTIONS (1)
  - Insomnia [Unknown]
